FAERS Safety Report 15814716 (Version 4)
Quarter: 2019Q3

REPORT INFORMATION
  Report Type: Report from Study
  Country: US (occurrence: US)
  Receive Date: 20190111
  Receipt Date: 20190806
  Transmission Date: 20191004
  Serious: Yes (Hospitalization, Other)
  Sender: FDA-Public Use
  Company Number: US-ACTELION-A-NJ2019-184805

PATIENT
  Age: 75 Year
  Sex: Female
  Weight: 64.85 kg

DRUGS (2)
  1. XARELTO [Concomitant]
     Active Substance: RIVAROXABAN
  2. OPSUMIT [Suspect]
     Active Substance: MACITENTAN
     Indication: PULMONARY HYPERTENSION
     Dosage: 10 MG, QD
     Route: 048
     Dates: start: 20181219

REACTIONS (8)
  - Gastric disorder [Recovered/Resolved with Sequelae]
  - Vascular graft [Unknown]
  - Intestinal obstruction [Unknown]
  - Hypersensitivity [Unknown]
  - Clostridium difficile infection [Recovered/Resolved with Sequelae]
  - Peripheral swelling [Unknown]
  - Vomiting [Recovered/Resolved with Sequelae]
  - Volvulus [Unknown]

NARRATIVE: CASE EVENT DATE: 201904
